FAERS Safety Report 8105162-0 (Version None)
Quarter: 2012Q1

REPORT INFORMATION
  Report Type: 
  Country: None (occurrence: None)
  Receive Date: 20120201
  Receipt Date: 20101019
  Transmission Date: 20120608
  Serious: Yes (Death)
  Sender: FDA-Public Use
  Company Number: US-ROXANE LABORATORIES, INC.-2010-DE-05790GD

PATIENT
  Age: 50 Year
  Sex: Male

DRUGS (8)
  1. TRAZODONE HCL [Suspect]
     Indication: DEPRESSION
     Dosage: 200 MG
  2. FLUOXETINE [Suspect]
     Dosage: 60 MG
  3. TRAZODONE HCL [Suspect]
     Indication: POST-TRAUMATIC STRESS DISORDER
  4. DIAZEPAM [Suspect]
     Indication: POST-TRAUMATIC STRESS DISORDER
  5. FLUOXETINE [Suspect]
     Indication: DEPRESSION
     Dosage: 20 MG
  6. FLUOXETINE [Suspect]
     Indication: POST-TRAUMATIC STRESS DISORDER
     Dosage: 40 MG
  7. OXYCODONE HCL [Suspect]
     Indication: ANALGESIC THERAPY
     Dosage: 200 MG
     Route: 048
  8. DIAZEPAM [Suspect]
     Indication: DEPRESSION
     Dosage: 15 MG

REACTIONS (2)
  - TOXICITY TO VARIOUS AGENTS [None]
  - DRUG INTERACTION [None]
